FAERS Safety Report 19742092 (Version 1)
Quarter: 2021Q3

REPORT INFORMATION
  Report Type: Spontaneous
  Country: US (occurrence: US)
  Receive Date: 20210824
  Receipt Date: 20210824
  Transmission Date: 20211014
  Serious: Yes (Hospitalization)
  Sender: FDA-Public Use
  Company Number: US-PFIZER INC-2021601185

PATIENT
  Age: 63 Year
  Sex: Male
  Weight: 78.91 kg

DRUGS (2)
  1. INLYTA [Suspect]
     Active Substance: AXITINIB
     Indication: RENAL CELL CARCINOMA
     Dosage: 5 MG, 2X/DAY
     Dates: start: 20210329
  2. CABOMETYX [Concomitant]
     Active Substance: CABOZANTINIB S-MALATE
     Dosage: UNK

REACTIONS (6)
  - Hypotension [Unknown]
  - Fatigue [Unknown]
  - Clostridium difficile infection [Unknown]
  - Joint swelling [Unknown]
  - Decreased appetite [Unknown]
  - Dysphonia [Unknown]

NARRATIVE: CASE EVENT DATE: 20210804
